FAERS Safety Report 20336286 (Version 2)
Quarter: 2022Q1

REPORT INFORMATION
  Report Type: Spontaneous
  Country: FR (occurrence: FR)
  Receive Date: 20220114
  Receipt Date: 20220126
  Transmission Date: 20220423
  Serious: Yes (Other)
  Sender: FDA-Public Use
  Company Number: None

PATIENT
  Age: 29 Year
  Sex: Male

DRUGS (2)
  1. VALIUM [Suspect]
     Active Substance: DIAZEPAM
     Indication: Product used for unknown indication
     Dosage: MOST RECENT  DOSE ON 05/OCT/2021
     Route: 048
     Dates: start: 20211005
  2. ALCOHOL [Suspect]
     Active Substance: ALCOHOL
     Indication: Product used for unknown indication
     Dosage: MOST RECENT DOSE ON 05/OCT/2021
     Route: 048
     Dates: start: 20211005

REACTIONS (5)
  - Drug abuse [Unknown]
  - Depressed level of consciousness [Recovered/Resolved]
  - Amnestic disorder [Recovered/Resolved]
  - Head injury [Recovered/Resolved]
  - Fall [Unknown]

NARRATIVE: CASE EVENT DATE: 20211005
